FAERS Safety Report 7602525-4 (Version None)
Quarter: 2011Q3

REPORT INFORMATION
  Report Type: 
  Country: None (occurrence: None)
  Receive Date: 20110707
  Receipt Date: 20110406
  Transmission Date: 20111222
  Serious: Yes (Hospitalization)
  Sender: FDA-Public Use
  Company Number: US-CYPR-2011-000010

PATIENT
  Sex: Male
  Weight: 91.173 kg

DRUGS (8)
  1. ASPIRIN [Suspect]
     Indication: CORONARY ARTERY DISEASE
     Dosage: (81 MG QD ORAL)
     Route: 048
     Dates: start: 20091026
  2. CYPHER STENT [Concomitant]
  3. NORVASC [Concomitant]
  4. CLOPIDOGREL [Suspect]
     Indication: ANTIPLATELET THERAPY
     Dosage: (75 MG QD ORAL)
     Route: 048
     Dates: start: 20101116, end: 20110308
  5. ATENOLOL [Concomitant]
  6. ISOSORBIDE MONONITRATE [Concomitant]
  7. OMEPRAZOLE [Concomitant]
  8. VERAPAMIL HCL [Concomitant]

REACTIONS (1)
  - TRANSIENT ISCHAEMIC ATTACK [None]
